FAERS Safety Report 9773162 (Version 1)
Quarter: 2013Q4

REPORT INFORMATION
  Report Type: Spontaneous
  Country: HR (occurrence: HR)
  Receive Date: 20131219
  Receipt Date: 20131219
  Transmission Date: 20140711
  Serious: Yes (Hospitalization)
  Sender: FDA-Public Use
  Company Number: HR-PFIZER INC-2013358168

PATIENT
  Age: 4 Year
  Sex: Female
  Weight: 19 kg

DRUGS (13)
  1. MEDROL [Suspect]
     Dosage: 64 MG
     Route: 048
     Dates: start: 20131028, end: 20131028
  2. MEDROL [Suspect]
     Dosage: 32 MG
     Route: 048
     Dates: start: 20131029
  3. DEPAKINE CHRONO [Suspect]
     Indication: EPILEPSY
     Dosage: 375 MG, DAILY
     Dates: start: 20131010, end: 20131010
  4. DEPAKINE CHRONO [Suspect]
     Dosage: 450 MG, DAILY
     Route: 048
     Dates: start: 20131011, end: 20131113
  5. PHENYTOIN ( PHENYTOIN) [Suspect]
     Indication: EPILEPSY
     Dosage: 20 MG, 2X/DAY
     Dates: start: 20131015, end: 20131015
  6. DIFETOIN [Suspect]
     Dosage: 40 MG, 2X/DAY
     Dates: start: 20131016, end: 20131018
  7. DIFETOIN [Suspect]
     Dosage: 140 MG, DAILY
     Dates: start: 20131018, end: 20131026
  8. DIFETOIN [Suspect]
     Dosage: 180 MG, DAILY
     Route: 048
     Dates: start: 20131026, end: 20131114
  9. RIVOTRIL [Suspect]
     Indication: EPILEPSY
     Dosage: 0.75 MG, DAILY
     Route: 048
     Dates: start: 20131018
  10. SOLU-MEDROL [Concomitant]
     Dosage: 125 MG
     Route: 042
     Dates: start: 20131027
  11. SOLU-MEDROL [Concomitant]
     Dosage: 250 MG, UNK
     Route: 042
     Dates: start: 20131026
  12. SOLU-MEDROL [Concomitant]
     Dosage: 500 MG, UNK
     Route: 042
     Dates: start: 20131022, end: 20131025
  13. VIROLEX [Concomitant]
     Dosage: 200MG, 3X/DAY
     Route: 065
     Dates: start: 20131018, end: 20131027

REACTIONS (10)
  - Rash maculo-papular [Recovering/Resolving]
  - Aphthous stomatitis [Recovering/Resolving]
  - Genital ulceration [Recovering/Resolving]
  - Eyelid oedema [Recovered/Resolved]
  - Pyrexia [Recovered/Resolved]
  - Eosinophil percentage increased [Unknown]
  - Alanine aminotransferase increased [Unknown]
  - Aspartate aminotransferase increased [Unknown]
  - Gamma-glutamyltransferase increased [Unknown]
  - Blood lactate dehydrogenase increased [Unknown]
